FAERS Safety Report 7979403-4 (Version None)
Quarter: 2011Q4

REPORT INFORMATION
  Report Type: 
  Country: None (occurrence: None)
  Receive Date: 20111213
  Receipt Date: 20111213
  Transmission Date: 20120403
  Serious: Yes (Hospitalization)
  Sender: FDA-Public Use
  Company Number: None

PATIENT
  Age: 33 Year
  Weight: 22.2263 kg

DRUGS (2)
  1. ACETAMINOPHEN AND HYDROCODONE BITARTRATE [Suspect]
     Indication: PAIN
     Dosage: MG PO
     Route: 048
     Dates: start: 20110712
  2. ACETAMINOPHEN [Suspect]
     Indication: PAIN
     Dosage: 500 MG OTHER PO
     Route: 048
     Dates: start: 20111027, end: 20111111

REACTIONS (4)
  - OVARIAN CYST [None]
  - HEPATIC ENZYME INCREASED [None]
  - TOXICITY TO VARIOUS AGENTS [None]
  - INCORRECT DOSE ADMINISTERED [None]
